FAERS Safety Report 10422507 (Version 1)
Quarter: 2014Q3

REPORT INFORMATION
  Report Type: Spontaneous
  Country: US (occurrence: US)
  Receive Date: 20140901
  Receipt Date: 20140901
  Transmission Date: 20150326
  Serious: Yes (Hospitalization, Other)
  Sender: FDA-Public Use
  Company Number: PHEH2014US016689

PATIENT
  Age: 68 Year
  Sex: Female

DRUGS (12)
  1. COUMADIN [Suspect]
     Active Substance: WARFARIN SODIUM
     Dosage: UNK
     Dates: end: 201312
  2. LASIX [Suspect]
     Active Substance: FUROSEMIDE
     Dosage: UNK
     Dates: end: 201405
  3. CLOPIDOGREL BISULFATE. [Concomitant]
     Active Substance: CLOPIDOGREL BISULFATE
     Dosage: UNK
     Dates: start: 201312
  4. DICLOFENAC [Concomitant]
     Active Substance: DICLOFENAC
     Dosage: UNK
  5. VALSARTAN. [Concomitant]
     Active Substance: VALSARTAN
     Dosage: UNK
  6. DIOVAN HCT [Suspect]
     Active Substance: HYDROCHLOROTHIAZIDE\VALSARTAN
     Dosage: UNK
     Dates: end: 201405
  7. ADVAIR HFA [Suspect]
     Active Substance: FLUTICASONE PROPIONATE\SALMETEROL XINAFOATE
     Indication: CHRONIC OBSTRUCTIVE PULMONARY DISEASE
     Dosage: 1 DF, BID (1 PUFF) TWICE PER DAY (250/50)
     Route: 055
     Dates: start: 1999
  8. IPRATROPIUM BROMIDE AND SALBUTAMOL SULFATE [Concomitant]
     Dosage: UNK
  9. PLAVIX [Suspect]
     Active Substance: CLOPIDOGREL BISULFATE
     Dosage: UNK
     Dates: start: 201312
  10. ASPIRIN. [Concomitant]
     Active Substance: ASPIRIN
     Dosage: UNK
  11. OXYGEN. [Concomitant]
     Active Substance: OXYGEN
     Dosage: UNK
  12. SOTALOL. [Concomitant]
     Active Substance: SOTALOL
     Dosage: UNK

REACTIONS (20)
  - Blood sodium decreased [Not Recovered/Not Resolved]
  - Heart rate decreased [Recovered/Resolved]
  - Decreased appetite [Not Recovered/Not Resolved]
  - Gait disturbance [Recovered/Resolved]
  - Blood pressure increased [Unknown]
  - Fluid retention [Not Recovered/Not Resolved]
  - Cardiovascular disorder [Not Recovered/Not Resolved]
  - Blood potassium decreased [Not Recovered/Not Resolved]
  - Dyspnoea [Recovered/Resolved]
  - Abdominal pain upper [Not Recovered/Not Resolved]
  - Pericardial effusion [Not Recovered/Not Resolved]
  - Asthenia [Not Recovered/Not Resolved]
  - Syncope [Not Recovered/Not Resolved]
  - Chronic obstructive pulmonary disease [Not Recovered/Not Resolved]
  - Pleural effusion [Not Recovered/Not Resolved]
  - Dizziness [Not Recovered/Not Resolved]
  - Blood electrolytes abnormal [Not Recovered/Not Resolved]
  - Chest pain [Recovered/Resolved]
  - Blood magnesium decreased [Not Recovered/Not Resolved]
  - Cardiac disorder [Not Recovered/Not Resolved]

NARRATIVE: CASE EVENT DATE: 201210
